FAERS Safety Report 10062645 (Version 1)
Quarter: 2014Q2

REPORT INFORMATION
  Report Type: Spontaneous
  Country: US (occurrence: US)
  Receive Date: 20140407
  Receipt Date: 20140407
  Transmission Date: 20141212
  Serious: Yes (Hospitalization)
  Sender: FDA-Public Use
  Company Number: US-PERRIGO-14US003335

PATIENT
  Age: 81 Year
  Sex: Female

DRUGS (1)
  1. LOPERAMIDE HYDROCHLORIDE 0.2 MG/ML 377 [Suspect]
     Indication: DIARRHOEA
     Dosage: UNKNOWN, UNKNOWN
     Route: 065

REACTIONS (3)
  - Intestinal obstruction [Recovered/Resolved]
  - Hydronephrosis [Recovered/Resolved]
  - Drug abuse [Recovered/Resolved]
